FAERS Safety Report 6358289-8 (Version None)
Quarter: 2009Q3

REPORT INFORMATION
  Report Type: 
  Country: None (occurrence: None)
  Receive Date: 20090916
  Receipt Date: 20090907
  Transmission Date: 20100115
  Serious: Yes (Hospitalization)
  Sender: FDA-Public Use
  Company Number: PHHY2009FR38508

PATIENT
  Sex: Male

DRUGS (5)
  1. EXELON [Suspect]
     Dosage: 6 MG, BID
     Route: 048
     Dates: start: 20060101, end: 20090721
  2. TRIVASTAL [Suspect]
     Dosage: 50 MG, QD
     Route: 048
     Dates: start: 20020101, end: 20090721
  3. EBIXA [Suspect]
     Dosage: 1 DF, BID
     Dates: start: 20040101, end: 20090721
  4. KARDEGIC [Concomitant]
     Dosage: 160 MG, QD
     Route: 048
  5. DOLIPRANE [Concomitant]
     Dosage: UNK

REACTIONS (5)
  - BUNDLE BRANCH BLOCK LEFT [None]
  - BUNDLE BRANCH BLOCK RIGHT [None]
  - CEREBROVASCULAR ACCIDENT [None]
  - CONDUCTION DISORDER [None]
  - MALAISE [None]
